FAERS Safety Report 9637866 (Version 2)
Quarter: 2015Q2

REPORT INFORMATION
  Report Type: Report from Study
  Country: US (occurrence: US)
  Receive Date: 20131022
  Receipt Date: 20150420
  Transmission Date: 20150821
  Serious: Yes (Death, Hospitalization)
  Sender: FDA-Public Use
  Company Number: US-ROCHE-1287691

PATIENT
  Sex: Male

DRUGS (14)
  1. AVASTIN [Suspect]
     Active Substance: BEVACIZUMAB
     Indication: ANAPLASTIC ASTROCYTOMA
     Route: 042
     Dates: start: 20080702
  2. COMPAZINE [Concomitant]
     Active Substance: PROCHLORPERAZINE MALEATE
     Route: 065
  3. KEPPRA [Concomitant]
     Active Substance: LEVETIRACETAM
     Route: 048
  4. ONDANSETRON [Concomitant]
     Active Substance: ONDANSETRON
  5. DECADRON [Concomitant]
     Active Substance: DEXAMETHASONE
     Route: 042
  6. DECADRON [Concomitant]
     Active Substance: DEXAMETHASONE
     Dosage: EVERY MORNING
     Route: 048
  7. TEMODAR [Concomitant]
     Active Substance: TEMOZOLOMIDE
  8. AVASTIN [Suspect]
     Active Substance: BEVACIZUMAB
     Indication: BRAIN NEOPLASM MALIGNANT
     Route: 042
     Dates: start: 20080523
  9. AVASTIN [Suspect]
     Active Substance: BEVACIZUMAB
     Route: 042
     Dates: start: 20080815
  10. DECADRON [Concomitant]
     Active Substance: DEXAMETHASONE
     Dosage: EVERY NIGHT
     Route: 048
  11. CARBOPLATIN. [Concomitant]
     Active Substance: CARBOPLATIN
     Dosage: AUC OF 6 EVERY 4 WEEKS
     Route: 065
  12. NEURONTIN [Concomitant]
     Active Substance: GABAPENTIN
     Route: 065
  13. COREG [Concomitant]
     Active Substance: CARVEDILOL
     Route: 065
  14. IRINOTECAN [Concomitant]
     Active Substance: IRINOTECAN

REACTIONS (17)
  - Back pain [Unknown]
  - Contusion [Unknown]
  - Haemorrhage [Unknown]
  - Dyspnoea exertional [Unknown]
  - Oedema [Unknown]
  - Disease progression [Fatal]
  - Deep vein thrombosis [Unknown]
  - Scab [Unknown]
  - Ecchymosis [Unknown]
  - Skin fragility [Unknown]
  - Diarrhoea [Unknown]
  - Scoliosis [Unknown]
  - Vision blurred [Unknown]
  - Pulmonary embolism [Unknown]
  - Decreased appetite [Unknown]
  - Fatigue [Unknown]
  - Thrombocytopenia [Unknown]
